FAERS Safety Report 8554748-8 (Version None)
Quarter: 2012Q3

REPORT INFORMATION
  Report Type: 
  Country: None (occurrence: None)
  Receive Date: 20120731
  Receipt Date: 20120718
  Transmission Date: 20120928
  Serious: Yes (Hospitalization, Disabling, Other)
  Sender: FDA-Public Use
  Company Number: US-009507513-1103USA00935

PATIENT

DRUGS (6)
  1. FOSAMAX [Suspect]
     Dosage: 70 MG, QW
     Route: 048
     Dates: start: 20010129, end: 20080224
  2. FOSAMAX [Suspect]
     Indication: OSTEOPENIA
     Dosage: 5 MG, QD
     Route: 048
     Dates: start: 20000620, end: 20000717
  3. MULTI-VITAMINS [Concomitant]
     Indication: OSTEOPENIA
  4. FOSAMAX [Suspect]
     Dosage: 5 MG, QD
     Route: 048
     Dates: start: 20000718, end: 20010128
  5. FOSAMAX [Suspect]
     Dosage: 70 MG, QW
     Route: 048
     Dates: start: 20080225, end: 20100301
  6. OS-CAL + D [Concomitant]
     Indication: OSTEOPOROSIS
     Dates: start: 20000609

REACTIONS (39)
  - LEUKOCYTOSIS [None]
  - RADIUS FRACTURE [None]
  - DIASTOLIC DYSFUNCTION [None]
  - HYPERPARATHYROIDISM [None]
  - OSTEOPOROSIS [None]
  - ATRIOVENTRICULAR BLOCK FIRST DEGREE [None]
  - DEAFNESS NEUROSENSORY [None]
  - BLOOD CHOLESTEROL INCREASED [None]
  - AORTIC VALVE INCOMPETENCE [None]
  - COLONIC POLYP [None]
  - SKIN LESION [None]
  - LOW TURNOVER OSTEOPATHY [None]
  - LUMBAR RADICULOPATHY [None]
  - CATARACT OPERATION [None]
  - SPONDYLOLISTHESIS [None]
  - FEMUR FRACTURE [None]
  - MALIGNANT MELANOMA [None]
  - MELANOCYTIC NAEVUS [None]
  - COLON ADENOMA [None]
  - SUPRAVENTRICULAR TACHYCARDIA [None]
  - THYROID NEOPLASM [None]
  - STRESS FRACTURE [None]
  - INTERVERTEBRAL DISC PROTRUSION [None]
  - CHOLELITHIASIS [None]
  - DYSLIPIDAEMIA [None]
  - GASTROOESOPHAGEAL REFLUX DISEASE [None]
  - BACK PAIN [None]
  - ADVERSE EVENT [None]
  - DIVERTICULUM [None]
  - OSTEOARTHRITIS [None]
  - EYE DISORDER [None]
  - GALLBLADDER DISORDER [None]
  - BASAL CELL CARCINOMA [None]
  - SUPRAVENTRICULAR EXTRASYSTOLES [None]
  - HYPERLIPIDAEMIA [None]
  - ULNA FRACTURE [None]
  - ROTATOR CUFF SYNDROME [None]
  - CARDIAC VENTRICULAR DISORDER [None]
  - LENTIGO [None]
